FAERS Safety Report 26111261 (Version 1)
Quarter: 2025Q4

REPORT INFORMATION
  Report Type: Spontaneous
  Country: US (occurrence: US)
  Receive Date: 20251202
  Receipt Date: 20251202
  Transmission Date: 20260117
  Serious: Yes (Other)
  Sender: ACS DOBFAR
  Company Number: US-ACS-20250624

PATIENT
  Sex: Female

DRUGS (1)
  1. ERTAPENEM [Suspect]
     Active Substance: ERTAPENEM
     Indication: Escherichia sepsis
     Dosage: 10 DAY COURSE OF MEDICATION, 1000 MG EACH DOSE
     Route: 042

REACTIONS (3)
  - Hallucination, auditory [Recovered/Resolved]
  - Confusional state [Unknown]
  - Amnesia [Recovered/Resolved]
